FAERS Safety Report 21546534 (Version 1)
Quarter: 2022Q4

REPORT INFORMATION
  Report Type: Report from Study
  Country: US (occurrence: US)
  Receive Date: 20221103
  Receipt Date: 20221103
  Transmission Date: 20230113
  Serious: No
  Sender: FDA-Public Use
  Company Number: US-ABBVIE-4148283

PATIENT
  Sex: Female

DRUGS (1)
  1. HUMIRA [Suspect]
     Active Substance: ADALIMUMAB
     Indication: Rheumatoid arthritis
     Dosage: FROM STRENGTH 40 MG
     Route: 058

REACTIONS (3)
  - Haematoma [Recovering/Resolving]
  - Blood blister [Recovering/Resolving]
  - Colonic abscess [Recovering/Resolving]
